FAERS Safety Report 6824262-6 (Version None)
Quarter: 2010Q3

REPORT INFORMATION
  Report Type: 
  Country: None (occurrence: None)
  Receive Date: 20100708
  Receipt Date: 20061216
  Transmission Date: 20110219
  Serious: No
  Sender: FDA-Public Use
  Company Number: US-PFIZER INC-2006127633

PATIENT
  Sex: Male

DRUGS (11)
  1. CHANTIX [Suspect]
  2. AVANDAMET [Concomitant]
  3. ZETIA [Concomitant]
  4. HYDROCHLOROTHIAZIDE [Concomitant]
  5. PLETAL [Concomitant]
  6. AMARYL [Concomitant]
  7. CRESTOR [Concomitant]
  8. NEURONTIN [Concomitant]
  9. PRIMIDONE [Concomitant]
  10. ACETYLSALICYLIC ACID [Concomitant]
  11. NIASPAN [Concomitant]

REACTIONS (1)
  - DEPRESSION [None]
